FAERS Safety Report 24865572 (Version 4)
Quarter: 2025Q1

REPORT INFORMATION
  Report Type: Spontaneous
  Country: CZ (occurrence: CZ)
  Receive Date: 20250121
  Receipt Date: 20250314
  Transmission Date: 20250408
  Serious: Yes (Life-Threatening, Hospitalization, Other)
  Sender: AUROBINDO
  Company Number: CZ-PMCS-2024002136

PATIENT
  Age: 72 Year
  Sex: Female

DRUGS (34)
  1. ACETAMINOPHEN [Suspect]
     Active Substance: ACETAMINOPHEN
     Indication: Product used for unknown indication
     Route: 065
  2. METFORMIN [Suspect]
     Active Substance: METFORMIN HYDROCHLORIDE
     Indication: Type 2 diabetes mellitus
     Dosage: 1850 MILLIGRAM, ONCE A DAY
     Route: 065
     Dates: end: 202401
  3. ALLOPURINOL [Suspect]
     Active Substance: ALLOPURINOL
     Indication: Product used for unknown indication
     Route: 065
     Dates: start: 202312, end: 2024
  4. ALLOPURINOL [Suspect]
     Active Substance: ALLOPURINOL
     Route: 065
     Dates: start: 20240106, end: 20240109
  5. DAPAGLIFLOZIN [Suspect]
     Active Substance: DAPAGLIFLOZIN
     Indication: Type 2 diabetes mellitus
     Route: 065
     Dates: start: 202312
  6. FUROSEMIDE [Suspect]
     Active Substance: FUROSEMIDE
     Indication: Product used for unknown indication
     Dosage: 62.5 MILLIGRAM, ONCE A DAY
     Route: 065
  7. FUROSEMIDE [Suspect]
     Active Substance: FUROSEMIDE
     Route: 042
  8. ASPIRIN [Suspect]
     Active Substance: ASPIRIN
     Indication: Product used for unknown indication
     Route: 065
  9. DICLOFENAC [Suspect]
     Active Substance: DICLOFENAC
     Indication: Product used for unknown indication
     Route: 065
  10. DULAGLUTIDE [Suspect]
     Active Substance: DULAGLUTIDE
     Indication: Type 2 diabetes mellitus
     Dosage: 0.75 MILLIGRAM, EVERY WEEK
     Route: 058
  11. GLIQUIDONE [Suspect]
     Active Substance: GLIQUIDONE
     Indication: Type 2 diabetes mellitus
     Dosage: 60 MILLIGRAM, ONCE A DAY
     Route: 065
  12. FOSINOPRIL [Concomitant]
     Active Substance: FOSINOPRIL
     Indication: Heart failure with preserved ejection fraction
     Dosage: 20 MILLIGRAM, ONCE A DAY
     Route: 065
  13. FUROSEMIDE [Concomitant]
     Active Substance: FUROSEMIDE
     Indication: Heart failure with preserved ejection fraction
     Dosage: 62.5 MILLIGRAM, ONCE A DAY
     Route: 065
  14. FUROSEMIDE [Concomitant]
     Active Substance: FUROSEMIDE
     Dosage: 20 MILLIGRAM, ONCE A DAY
     Route: 065
  15. GLIQUIDONE [Concomitant]
     Active Substance: GLIQUIDONE
     Indication: Product use in unapproved indication
     Dosage: 60 MILLIGRAM, ONCE A DAY
     Route: 065
  16. EZETIMIBE [Concomitant]
     Active Substance: EZETIMIBE
     Indication: Hyperlipidaemia
     Dosage: 10 MILLIGRAM, ONCE A DAY
     Route: 065
  17. BETAXOLOL [Concomitant]
     Active Substance: BETAXOLOL
     Indication: Product used for unknown indication
     Dosage: 10 MILLIGRAM, ONCE A DAY
     Route: 065
  18. POTASSIUM CHLORIDE [Concomitant]
     Active Substance: POTASSIUM CHLORIDE
     Indication: Product used for unknown indication
     Dosage: 500 MILLIGRAM, ONCE A DAY
     Route: 065
  19. DIOSMIN\HESPERIDIN [Concomitant]
     Active Substance: DIOSMIN\HESPERIDIN
     Indication: Product used for unknown indication
     Dosage: 1000 MILLIGRAM, ONCE A DAY
     Route: 065
  20. Bacitracin;Neomycin [Concomitant]
     Indication: Congenital musculoskeletal disorder of limbs
     Route: 065
  21. Bacitracin;Neomycin [Concomitant]
     Indication: Evidence based treatment
  22. CLINDAMYCIN [Concomitant]
     Active Substance: CLINDAMYCIN
     Indication: Congenital musculoskeletal disorder of limbs
     Dosage: 600 MILLIGRAM, 3 TIMES A DAY
     Route: 065
     Dates: end: 20240222
  23. CLINDAMYCIN [Concomitant]
     Active Substance: CLINDAMYCIN
     Indication: Evidence based treatment
  24. NOREPINEPHRINE BITARTRATE [Concomitant]
     Active Substance: NOREPINEPHRINE BITARTRATE
     Indication: Hypotension
     Route: 065
     Dates: start: 202402
  25. INSULIN NOS [Concomitant]
     Active Substance: INSULIN NOS
     Indication: Diabetes mellitus
     Route: 065
  26. PIPERACILLIN AND TAZOBACTAM [Concomitant]
     Active Substance: PIPERACILLIN SODIUM\TAZOBACTAM SODIUM
     Indication: Congenital musculoskeletal disorder of limbs
     Route: 042
  27. AMIKACIN [Concomitant]
     Active Substance: AMIKACIN
     Indication: Congenital musculoskeletal disorder of limbs
     Route: 065
  28. METHYLPREDNISOLONE [Concomitant]
     Active Substance: METHYLPREDNISOLONE
     Indication: Drug reaction with eosinophilia and systemic symptoms
     Route: 042
  29. METHYLPREDNISOLONE [Concomitant]
     Active Substance: METHYLPREDNISOLONE
     Route: 048
  30. PREDNISONE [Concomitant]
     Active Substance: PREDNISONE
     Indication: Drug reaction with eosinophilia and systemic symptoms
     Route: 065
  31. METFORMIN [Concomitant]
     Active Substance: METFORMIN HYDROCHLORIDE
     Indication: Product use in unapproved indication
     Route: 065
     Dates: start: 202401
  32. POTASSIUM CHLORATE [Concomitant]
     Active Substance: POTASSIUM CHLORATE
     Indication: Product use in unapproved indication
     Dosage: 500 MILLIGRAM, ONCE A DAY
     Route: 065
  33. DULAGLUTIDE [Concomitant]
     Active Substance: DULAGLUTIDE
     Indication: Product use in unapproved indication
     Route: 058
  34. NOREPINEPHRINE [Concomitant]
     Active Substance: NOREPINEPHRINE
     Indication: Hypotension
     Route: 065

REACTIONS (23)
  - Pseudomonas infection [Unknown]
  - Acute kidney injury [Recovered/Resolved]
  - Drug reaction with eosinophilia and systemic symptoms [Recovered/Resolved]
  - Enterococcal infection [Recovered/Resolved]
  - Escherichia infection [Recovered/Resolved]
  - Hyperuricaemia [Recovered/Resolved]
  - Hyperkalaemia [Recovered/Resolved]
  - Hypervolaemia [Recovered/Resolved]
  - Klebsiella infection [Unknown]
  - Nephroangiosclerosis [Recovered/Resolved]
  - Proteus infection [Recovered/Resolved]
  - Serratia infection [Unknown]
  - Tubulointerstitial nephritis [Recovered/Resolved]
  - Morganella infection [Recovered/Resolved]
  - Congenital musculoskeletal disorder of limbs [Unknown]
  - Drug intolerance [Unknown]
  - Nausea [Unknown]
  - Hypotension [Recovering/Resolving]
  - Asthenia [Unknown]
  - Drug ineffective [Recovering/Resolving]
  - Rash [Unknown]
  - Pruritus [Unknown]
  - Vomiting [Unknown]

NARRATIVE: CASE EVENT DATE: 20240101
